FAERS Safety Report 8444840-0 (Version None)
Quarter: 2012Q2

REPORT INFORMATION
  Report Type: 
  Country: None (occurrence: None)
  Receive Date: 20120611
  Receipt Date: 20120525
  Transmission Date: 20120825
  Serious: Yes (Hospitalization, Other)
  Sender: FDA-Public Use
  Company Number: 2012P1011410

PATIENT
  Age: 63 Year
  Sex: Male
  Weight: 106.5953 kg

DRUGS (14)
  1. OXYCONTIN [Concomitant]
  2. MULTI-VITAMIN [Concomitant]
  3. ZONISAMIDE [Concomitant]
  4. CARBAMAZEPINE [Suspect]
     Indication: CONVULSION
     Dosage: 400 MG;BID
     Dates: start: 20110101
  5. CARBAMAZEPINE [Suspect]
     Indication: SPINAL COLUMN STENOSIS
     Dosage: 400 MG;BID
     Dates: start: 20110101
  6. PREVACID [Concomitant]
  7. PRESCRIPTION POTASSIUM SUPPLEMENT [Concomitant]
  8. LYRICA [Concomitant]
  9. METOPROLOL [Concomitant]
  10. SYNTHROID [Concomitant]
  11. LASIX [Concomitant]
  12. ASPIRIN [Concomitant]
  13. VITAMIN B COMPLEX CAP [Concomitant]
  14. ZOCOR [Concomitant]

REACTIONS (4)
  - CONDITION AGGRAVATED [None]
  - ANTICONVULSANT DRUG LEVEL BELOW THERAPEUTIC [None]
  - NERVOUSNESS [None]
  - CONVULSION [None]
